FAERS Safety Report 9199185 (Version 2)
Quarter: 2013Q2

REPORT INFORMATION
  Report Type: Spontaneous
  Country: US (occurrence: None)
  Receive Date: 20130325
  Receipt Date: 20130401
  Transmission Date: 20140414
  Serious: No
  Sender: FDA-Public Use
  Company Number: 2013US-004568

PATIENT
  Age: 66 Year
  Sex: Female
  Weight: 118.1 kg

DRUGS (2)
  1. OMONTYS (PEGINESATIDE) SOLUTION FOR INJECTION [Suspect]
     Indication: NEPHROGENIC ANAEMIA
     Route: 042
     Dates: start: 20130118, end: 20130118
  2. EPOGEN (EPOETIN ALFA) [Concomitant]

REACTIONS (2)
  - Vision blurred [None]
  - Product quality issue [None]
